FAERS Safety Report 8280003-X (Version None)
Quarter: 2012Q2

REPORT INFORMATION
  Report Type: 
  Country: None (occurrence: None)
  Receive Date: 20120412
  Receipt Date: 20110621
  Transmission Date: 20120825
  Serious: No
  Sender: FDA-Public Use
  Company Number: US-ASTRAZENECA-2011SE37455

PATIENT
  Age: 70 Year
  Sex: Female
  Weight: 62.6 kg

DRUGS (2)
  1. ZYRTEC [Concomitant]
  2. NEXIUM [Suspect]
     Indication: OESOPHAGITIS
     Route: 048
     Dates: start: 20110610

REACTIONS (5)
  - INSOMNIA [None]
  - NAUSEA [None]
  - CONSTIPATION [None]
  - PAIN IN EXTREMITY [None]
  - BREAST PAIN [None]
